FAERS Safety Report 11739942 (Version 2)
Quarter: 2015Q4

REPORT INFORMATION
  Report Type: Spontaneous
  Country: US (occurrence: US)
  Receive Date: 20151110
  Receipt Date: 20151120
  Transmission Date: 20160304
  Serious: No
  Sender: FDA-Public Use
  Company Number: US-ELI_LILLY_AND_COMPANY-US201209003183

PATIENT
  Age: 69 Year
  Sex: Female
  Weight: 62.14 kg

DRUGS (1)
  1. FORTEO [Suspect]
     Active Substance: TERIPARATIDE
     Indication: OSTEOPOROSIS POSTMENOPAUSAL
     Dosage: 20 UG, QD
     Route: 065
     Dates: start: 20120808

REACTIONS (13)
  - Fatigue [Unknown]
  - Abdominal distension [Unknown]
  - Cold sweat [Unknown]
  - Intentional product misuse [Not Recovered/Not Resolved]
  - Swelling [Unknown]
  - Bradycardia [Recovered/Resolved]
  - Hypotension [Unknown]
  - Oedema peripheral [Unknown]
  - Dysstasia [Unknown]
  - General physical health deterioration [Unknown]
  - Asthenia [Unknown]
  - Fluid retention [Unknown]
  - Dizziness [Unknown]

NARRATIVE: CASE EVENT DATE: 201208
